FAERS Safety Report 5863575-1 (Version None)
Quarter: 2008Q3

REPORT INFORMATION
  Report Type: 
  Country: None (occurrence: None)
  Receive Date: 20080828
  Receipt Date: 20080820
  Transmission Date: 20090109
  Serious: No
  Sender: FDA-Public Use
  Company Number: US-BOEHRINGER INGELHEIM GMBH, GERMANY-2008-BP-12467BP

PATIENT
  Age: 87 Year
  Sex: Male

DRUGS (7)
  1. FLOMAX [Suspect]
     Indication: BENIGN PROSTATIC HYPERPLASIA
     Route: 048
     Dates: start: 20080701
  2. FLOMAX [Suspect]
     Indication: NOCTURIA
  3. SIMVASTATIN [Concomitant]
  4. VITAMIN TAB [Concomitant]
  5. ASPIRIN [Concomitant]
  6. GLUCOSAMINE [Concomitant]
  7. NIACIN [Concomitant]

REACTIONS (1)
  - NOCTURIA [None]
